FAERS Safety Report 4324713-5 (Version None)
Quarter: 2004Q1

REPORT INFORMATION
  Report Type: 
  Country: None (occurrence: None)
  Receive Date: 20040325
  Receipt Date: 20040325
  Transmission Date: 20041129
  Serious: Yes (Hospitalization)
  Sender: FDA-Public Use
  Company Number: None

PATIENT
  Age: 65 Year
  Sex: Male
  Weight: 107.5 kg

DRUGS (6)
  1. NITROGLYCERIN [Suspect]
  2. ADHESIVE TAPE [Suspect]
  3. ISOSORBIDE MONONITRATE [Concomitant]
  4. SIMVASTATIN [Concomitant]
  5. FELODIPINE [Concomitant]
  6. LORATADINE [Concomitant]

REACTIONS (2)
  - PRURITUS [None]
  - URTICARIA [None]
